FAERS Safety Report 5103127-4 (Version None)
Quarter: 2006Q3

REPORT INFORMATION
  Report Type: 
  Country: None (occurrence: None)
  Receive Date: 20060908
  Receipt Date: 20060828
  Transmission Date: 20061208
  Serious: Yes (Death, Other)
  Sender: FDA-Public Use
  Company Number: 2006104786

PATIENT
  Age: 50 Year
  Sex: Male

DRUGS (2)
  1. ZYVOX [Suspect]
     Indication: SEPSIS
     Dosage: 600 MG INTRAVENOUS
     Route: 042
     Dates: start: 20060601
  2. ZYVOX [Suspect]
     Indication: SEPSIS
     Dosage: 600 MG, ORAL
     Route: 048
     Dates: start: 20060701

REACTIONS (7)
  - BACTERIA BLOOD IDENTIFIED [None]
  - BLOOD CREATININE ABNORMAL [None]
  - CARDIAC FAILURE [None]
  - HEPATITIS [None]
  - PATHOGEN RESISTANCE [None]
  - PLATELET COUNT DECREASED [None]
  - PSEUDOMONAS INFECTION [None]
